FAERS Safety Report 21979422 (Version 2)
Quarter: 2023Q1

REPORT INFORMATION
  Report Type: Spontaneous
  Country: CN (occurrence: CN)
  Receive Date: 20230210
  Receipt Date: 20230214
  Transmission Date: 20230418
  Serious: Yes (Other)
  Sender: FDA-Public Use
  Company Number: CN-009507513-2302CHN001650

PATIENT
  Age: 27 Year
  Sex: Female
  Weight: 55 kg

DRUGS (1)
  1. INVANZ [Suspect]
     Active Substance: ERTAPENEM SODIUM
     Indication: Pneumonia
     Dosage: 0.5 G, QD
     Route: 041
     Dates: start: 20230119, end: 20230121

REACTIONS (5)
  - Epilepsy [Recovering/Resolving]
  - Intracranial infection [Unknown]
  - Facial spasm [Recovering/Resolving]
  - Trismus [Recovering/Resolving]
  - Product use issue [Unknown]

NARRATIVE: CASE EVENT DATE: 20230101
